FAERS Safety Report 5615746-7 (Version None)
Quarter: 2008Q1

REPORT INFORMATION
  Report Type: 
  Country: None (occurrence: None)
  Receive Date: 20080131
  Receipt Date: 20080123
  Transmission Date: 20080703
  Serious: Yes (Other)
  Sender: FDA-Public Use
  Company Number: 2008002177

PATIENT
  Age: 52 Year
  Sex: Female
  Weight: 136.0791 kg

DRUGS (2)
  1. LISTERINE WHITENING QUICK DISSOLVING STRIPS (NO ACTIVE INGREDIENT) [Suspect]
     Indication: DENTAL CARE
     Dosage: 3 TIMES A DAY, ORAL
     Route: 048
     Dates: start: 20071101
  2. PREDNISONE TAB [Concomitant]

REACTIONS (1)
  - TOOTH LOSS [None]
